FAERS Safety Report 19327500 (Version 1)
Quarter: 2021Q2

REPORT INFORMATION
  Report Type: Spontaneous
  Country: ES (occurrence: ES)
  Receive Date: 20210528
  Receipt Date: 20210528
  Transmission Date: 20210717
  Serious: Yes (Disabling, Other)
  Sender: FDA-Public Use
  Company Number: ES-SA-2021SA169742

PATIENT
  Age: 80 Year
  Sex: Female
  Weight: 65 kg

DRUGS (4)
  1. DAPAGLIFLOZIN. [Concomitant]
     Active Substance: DAPAGLIFLOZIN
     Indication: TYPE 2 DIABETES MELLITUS
     Dosage: 10 MG
     Route: 065
  2. LANTUS [Suspect]
     Active Substance: INSULIN GLARGINE
     Indication: TYPE 2 DIABETES MELLITUS
     Dosage: 38 IU
     Route: 058
     Dates: end: 20210516
  3. LINAGLIPTIN [Concomitant]
     Active Substance: LINAGLIPTIN
     Indication: TYPE 2 DIABETES MELLITUS
     Dosage: 5 MG
     Route: 065
  4. TOUJEO [Concomitant]
     Active Substance: INSULIN GLARGINE
     Indication: DIABETES MELLITUS INADEQUATE CONTROL
     Dosage: UNK
     Route: 065
     Dates: start: 20210517

REACTIONS (16)
  - Coordination abnormal [Unknown]
  - Feeling abnormal [Unknown]
  - Confusional state [Unknown]
  - Movement disorder [Unknown]
  - Renal disorder [Unknown]
  - Back pain [Unknown]
  - Depressed level of consciousness [Unknown]
  - Nerve compression [Unknown]
  - Somnolence [Unknown]
  - Knee arthroplasty [Unknown]
  - Radiculopathy [Unknown]
  - Impaired work ability [Unknown]
  - Muscle contracture [Unknown]
  - Speech disorder [Unknown]
  - Intervertebral disc degeneration [Unknown]
  - Diabetes mellitus inadequate control [Recovering/Resolving]
